FAERS Safety Report 7816650-6 (Version None)
Quarter: 2011Q4

REPORT INFORMATION
  Report Type: 
  Country: None (occurrence: None)
  Receive Date: 20111017
  Receipt Date: 20111005
  Transmission Date: 20120403
  Serious: Yes (Disabling, Other)
  Sender: FDA-Public Use
  Company Number: DE-US-EMD SERONO, INC.-7088847

PATIENT
  Age: 51 Year
  Sex: Female

DRUGS (1)
  1. REBIF [Suspect]
     Indication: MULTIPLE SCLEROSIS
     Route: 058

REACTIONS (6)
  - MOVEMENT DISORDER [None]
  - INJECTION SITE REACTION [None]
  - BLOOD GLUCOSE INCREASED [None]
  - PYREXIA [None]
  - ABDOMINAL DISCOMFORT [None]
  - WALKING DISABILITY [None]
